FAERS Safety Report 8167440-9 (Version None)
Quarter: 2012Q1

REPORT INFORMATION
  Report Type: 
  Country: None (occurrence: None)
  Receive Date: 20120221
  Receipt Date: 20120210
  Transmission Date: 20120608
  Serious: No
  Sender: FDA-Public Use
  Company Number: CM12-0008

PATIENT
  Sex: Male

DRUGS (2)
  1. ERYTHROMYCIN [Concomitant]
  2. PHYTONADIONE [Suspect]
     Indication: HAEMORRHAGIC DISEASE OF NEWBORN
     Dates: start: 20120108, end: 20120108

REACTIONS (1)
  - NEEDLE ISSUE [None]
